FAERS Safety Report 20892906 (Version 2)
Quarter: 2022Q3

REPORT INFORMATION
  Report Type: Spontaneous
  Country: IT (occurrence: IT)
  Receive Date: 20220531
  Receipt Date: 20220810
  Transmission Date: 20221027
  Serious: Yes (Death, Other)
  Sender: FDA-Public Use
  Company Number: IT-AMGEN-ITASP2022090740

PATIENT

DRUGS (1)
  1. PROLIA [Suspect]
     Active Substance: DENOSUMAB
     Indication: Osteoporosis
     Route: 065

REACTIONS (6)
  - Rebound effect [Unknown]
  - Death [Fatal]
  - Traumatic fracture [Unknown]
  - Pathological fracture [Unknown]
  - Illness [Unknown]
  - Treatment noncompliance [Unknown]
